FAERS Safety Report 10009347 (Version 1)
Quarter: 2014Q1

REPORT INFORMATION
  Report Type: Spontaneous
  Country: CA (occurrence: CA)
  Receive Date: 20140313
  Receipt Date: 20140313
  Transmission Date: 20141002
  Serious: Yes (Other)
  Sender: FDA-Public Use
  Company Number: CA-ACTAVIS-2014-04480

PATIENT
  Age: 70 Year
  Sex: Female
  Weight: 82 kg

DRUGS (1)
  1. LETROZOLE (UNKNOWN) [Suspect]
     Indication: PRODUCT USED FOR UNKNOWN INDICATION
     Dosage: 2 MG TABLET DAILY
     Route: 048

REACTIONS (15)
  - Breast pain [Recovering/Resolving]
  - Burning sensation [Recovering/Resolving]
  - Cystitis [Recovering/Resolving]
  - Erythema [Recovering/Resolving]
  - Gastrooesophageal reflux disease [Recovering/Resolving]
  - Hot flush [Recovering/Resolving]
  - Joint swelling [Recovering/Resolving]
  - Night sweats [Recovering/Resolving]
  - Oedema peripheral [Recovering/Resolving]
  - Pain [Recovering/Resolving]
  - Pain in extremity [Recovering/Resolving]
  - Pruritus [Recovering/Resolving]
  - Sleep disorder [Recovering/Resolving]
  - Thrombophlebitis [Recovering/Resolving]
  - Weight bearing difficulty [Recovering/Resolving]
